FAERS Safety Report 19534500 (Version 3)
Quarter: 2021Q3

REPORT INFORMATION
  Report Type: Report from Study
  Country: US (occurrence: US)
  Receive Date: 20210713
  Receipt Date: 20210929
  Transmission Date: 20211014
  Serious: No
  Sender: FDA-Public Use
  Company Number: NVSC2021US151744

PATIENT
  Sex: Female
  Weight: 67.12 kg

DRUGS (4)
  1. OPSUMIT [Concomitant]
     Active Substance: MACITENTAN
     Indication: PULMONARY ARTERIAL HYPERTENSION
     Dosage: UNK
     Route: 065
  2. TREPROSTINIL. [Suspect]
     Active Substance: TREPROSTINIL
     Indication: PULMONARY ARTERIAL HYPERTENSION
     Dosage: 75.3 NANOGRAM PER KILOGRAM, CONT (NG/KG/MIN)
     Route: 058
     Dates: start: 20210618
  3. TREPROSTINIL. [Suspect]
     Active Substance: TREPROSTINIL
     Dosage: 75.3 NANOGRAM PER KILOGRAM, CONT (NG/KG/MIN)
     Route: 058
     Dates: start: 20210618
  4. ADCIRCA [Concomitant]
     Active Substance: TADALAFIL
     Indication: PULMONARY ARTERIAL HYPERTENSION
     Dosage: UNK
     Route: 065

REACTIONS (6)
  - Headache [Unknown]
  - Diarrhoea [Unknown]
  - Pain [Unknown]
  - Hypersensitivity [Unknown]
  - Fatigue [Unknown]
  - Product quality issue [Unknown]
